FAERS Safety Report 15154408 (Version 1)
Quarter: 2018Q3

REPORT INFORMATION
  Report Type: Spontaneous
  Country: US (occurrence: US)
  Receive Date: 20180717
  Receipt Date: 20180717
  Transmission Date: 20181010
  Serious: No
  Sender: FDA-Public Use
  Company Number: US-BAYER-2018-132870

PATIENT
  Age: 25 Year
  Sex: Female

DRUGS (1)
  1. MIRENA [Suspect]
     Active Substance: LEVONORGESTREL
     Dosage: 20 MCG/24HR, CONT
     Route: 015
     Dates: start: 20180711, end: 20180711

REACTIONS (3)
  - Uterine cervix stenosis [None]
  - Device use issue [None]
  - Complication of device insertion [None]

NARRATIVE: CASE EVENT DATE: 20180711
